FAERS Safety Report 9769932 (Version 1)
Quarter: 2013Q4

REPORT INFORMATION
  Report Type: Spontaneous
  Country: US (occurrence: US)
  Receive Date: 20131218
  Receipt Date: 20131218
  Transmission Date: 20140711
  Serious: No
  Sender: FDA-Public Use
  Company Number: US-VERTEX PHARMACEUTICALS INC-AE-2011-000816

PATIENT
  Age: 51 Year
  Sex: Female
  Weight: 63.18 kg

DRUGS (7)
  1. INCIVEK [Suspect]
     Indication: HEPATITIS C
     Route: 048
     Dates: start: 20110802
  2. RIBAVIRIN [Concomitant]
     Indication: HEPATITIS C
     Route: 048
     Dates: start: 20110802
  3. PEGASYS [Concomitant]
     Indication: HEPATITIS C
     Route: 058
     Dates: start: 20110804
  4. LORTAB [Concomitant]
  5. CLONOPIN [Concomitant]
  6. GABAPENTIN [Concomitant]
     Dates: start: 2011
  7. SYNTHROID [Concomitant]

REACTIONS (2)
  - Paraesthesia [Not Recovered/Not Resolved]
  - Rash generalised [Not Recovered/Not Resolved]
